FAERS Safety Report 4340542-0 (Version None)
Quarter: 2004Q2

REPORT INFORMATION
  Report Type: 
  Country: None (occurrence: None)
  Receive Date: 20040414
  Receipt Date: 20040401
  Transmission Date: 20050107
  Serious: Yes (Other)
  Sender: FDA-Public Use
  Company Number: 2004023116

PATIENT
  Age: 71 Year
  Sex: Female

DRUGS (3)
  1. AMLODIPINE [Suspect]
     Indication: HYPERTENSION
     Dosage: 10 MG (BID), ORAL
     Route: 048
     Dates: start: 19990601
  2. ACETYLSALICYLIC ACID SRT [Concomitant]
  3. ENALAPRIL MALEATE [Concomitant]

REACTIONS (3)
  - ACNE [None]
  - GAIT DISTURBANCE [None]
  - PAIN [None]
